FAERS Safety Report 9049604 (Version 2)
Quarter: 2013Q1

REPORT INFORMATION
  Report Type: Spontaneous
  Country: FR (occurrence: FR)
  Receive Date: 20130205
  Receipt Date: 20130315
  Transmission Date: 20140127
  Serious: Yes (Life-Threatening, Hospitalization)
  Sender: FDA-Public Use
  Company Number: FR-ROCHE-1187341

PATIENT
  Age: 65 Year
  Sex: Male

DRUGS (12)
  1. ROCEPHINE [Suspect]
     Indication: ARTHRITIS INFECTIVE
     Route: 042
     Dates: start: 20121204, end: 20130116
  2. VANCOMYCINE [Suspect]
     Indication: PNEUMONIA
     Route: 042
     Dates: start: 20130124, end: 20130128
  3. CIFLOX [Suspect]
     Indication: PNEUMONIA
     Route: 065
     Dates: start: 20130124, end: 20130128
  4. NOZINAN (UNITED KINGDOM) [Concomitant]
     Route: 048
     Dates: start: 20121129, end: 20130116
  5. NOZINAN (UNITED KINGDOM) [Concomitant]
     Dosage: RESTARTED
     Route: 065
  6. CYMBALTA [Concomitant]
  7. SERESTA [Concomitant]
  8. FUROSEMIDE [Concomitant]
  9. AMIODARONE [Concomitant]
  10. DIFFU K [Concomitant]
  11. PROPANOLOLI HYDROCHLORIDUM [Concomitant]
  12. DUROGESIC [Concomitant]

REACTIONS (1)
  - Drug reaction with eosinophilia and systemic symptoms [Not Recovered/Not Resolved]
